FAERS Safety Report 8094664-1 (Version None)
Quarter: 2012Q1

REPORT INFORMATION
  Report Type: 
  Country: None (occurrence: None)
  Receive Date: 20120131
  Receipt Date: 20111130
  Transmission Date: 20120608
  Serious: No
  Sender: FDA-Public Use
  Company Number: US-ABBOTT-11P-163-0879811-00

PATIENT
  Sex: Female
  Weight: 67.192 kg

DRUGS (8)
  1. SIMCOR [Concomitant]
     Indication: PRODUCT USED FOR UNKNOWN INDICATION
     Dosage: 1000/20MG ONCE DAILY
     Route: 048
  2. CREON [Suspect]
     Indication: GASTROINTESTINAL DISORDER
  3. AZOR [Concomitant]
     Indication: HYPERTENSION
     Route: 048
  4. OMEPRAZOLE [Concomitant]
     Indication: PRODUCT USED FOR UNKNOWN INDICATION
  5. PROBIOTICS [Concomitant]
     Indication: PRODUCT USED FOR UNKNOWN INDICATION
  6. TECTURNA HYDROCHLOROTHIAZIDE [Concomitant]
     Indication: PRODUCT USED FOR UNKNOWN INDICATION
     Dosage: 150MG / 25MG PER TABLET, ONCE DAILY
     Route: 048
  7. CREON [Suspect]
     Indication: DIARRHOEA
     Dosage: TWO CAPSULES WITH EACH MEAL
     Route: 048
     Dates: start: 20111128, end: 20111130
  8. CREON [Suspect]

REACTIONS (1)
  - DIARRHOEA [None]
